FAERS Safety Report 8624819-6 (Version None)
Quarter: 2012Q3

REPORT INFORMATION
  Report Type: 
  Country: None (occurrence: None)
  Receive Date: 20120827
  Receipt Date: 20120817
  Transmission Date: 20120928
  Serious: Yes (Other)
  Sender: FDA-Public Use
  Company Number: US-ASTRAZENECA-2012SE60015

PATIENT
  Age: 28 Year
  Sex: Female
  Weight: 77.1 kg

DRUGS (15)
  1. NEXIUM [Suspect]
     Indication: GASTROOESOPHAGEAL REFLUX DISEASE
     Route: 048
     Dates: start: 20120701
  2. DEXAMETHASONE [Concomitant]
     Indication: BREAST CANCER
     Route: 048
     Dates: start: 20120703
  3. KYTRIL [Concomitant]
     Indication: NAUSEA
     Route: 042
     Dates: start: 20120701
  4. PROMETHAZINE [Concomitant]
     Indication: NAUSEA
     Dosage: AS REQUIRED
     Dates: start: 20120701
  5. IV FLUIDS [Concomitant]
     Indication: FLUID REPLACEMENT
     Route: 042
     Dates: start: 20120701
  6. NEULASTA [Suspect]
     Indication: WHITE BLOOD CELL COUNT DECREASED
     Route: 058
     Dates: start: 20120701
  7. SERTRALINE HYDROCHLORIDE [Concomitant]
     Indication: DEPRESSION
     Route: 048
     Dates: start: 20120611
  8. PRILOSEC [Suspect]
     Indication: GASTROOESOPHAGEAL REFLUX DISEASE
     Route: 048
     Dates: start: 20020101, end: 20120701
  9. STEROID THERAPY [Suspect]
     Route: 065
  10. MARINOL [Concomitant]
     Indication: NAUSEA
     Dosage: AS REQUIRED
     Dates: start: 20120701
  11. XANAX [Concomitant]
     Indication: ANXIETY
     Route: 048
     Dates: start: 20120601
  12. SINGULAIR [Concomitant]
     Indication: ASTHMA
     Route: 048
     Dates: start: 20020101
  13. ALLEGRA [Concomitant]
     Indication: EYE PRURITUS
     Dosage: ONCE
     Route: 048
     Dates: start: 20120701
  14. HYDROCODONE ACETOMINOPHEN [Concomitant]
     Indication: BONE PAIN
     Dosage: 7.5/50 AS REQUIRED
     Route: 048
     Dates: start: 20120701
  15. FIORICET [Concomitant]
     Indication: HEADACHE
     Dosage: 50/325/40MG AS REQUIRED
     Route: 048
     Dates: start: 20120705

REACTIONS (9)
  - DRUG INEFFECTIVE [None]
  - NAUSEA [None]
  - ANXIETY [None]
  - BREAST CANCER [None]
  - DEPRESSION [None]
  - HEADACHE [None]
  - PNEUMOTHORAX [None]
  - BONE PAIN [None]
  - EYE PRURITUS [None]
